FAERS Safety Report 13795253 (Version 1)
Quarter: 2017Q3

REPORT INFORMATION
  Report Type: Spontaneous
  Country: RU (occurrence: RU)
  Receive Date: 20170726
  Receipt Date: 20170726
  Transmission Date: 20171127
  Serious: Yes (Hospitalization, Other)
  Sender: FDA-Public Use
  Company Number: RU-ASTRAZENECA-2017SE74536

PATIENT
  Age: 75 Year
  Sex: Male
  Weight: 109 kg

DRUGS (10)
  1. CORDARONE [Concomitant]
     Active Substance: AMIODARONE HYDROCHLORIDE
  2. BETALOC ZOK [Concomitant]
     Active Substance: METOPROLOL SUCCINATE
  3. DIUVER [Concomitant]
     Active Substance: TORSEMIDE
  4. MONOCINQUE [Concomitant]
     Active Substance: ISOSORBIDE MONONITRATE
  5. NOLPAZA [Concomitant]
     Active Substance: PANTOPRAZOLE SODIUM
  6. PRESTARIUM [Concomitant]
     Active Substance: PERINDOPRIL
  7. BRILINTA [Suspect]
     Active Substance: TICAGRELOR
     Indication: MYOCARDIAL INFARCTION
     Route: 048
     Dates: start: 201512
  8. VEROSPIRON [Concomitant]
     Active Substance: SPIRONOLACTONE
  9. ATORVASTATIN [Concomitant]
     Active Substance: ATORVASTATIN
  10. CARDIOMAGNYL [Concomitant]
     Active Substance: ASPIRIN\MAGNESIUM HYDROXIDE

REACTIONS (3)
  - Arrhythmia [Recovered/Resolved]
  - Off label use [Unknown]
  - Product use issue [Unknown]

NARRATIVE: CASE EVENT DATE: 201603
